FAERS Safety Report 5076635-2 (Version None)
Quarter: 2006Q3

REPORT INFORMATION
  Report Type: 
  Country: None (occurrence: None)
  Receive Date: 20060810
  Receipt Date: 20060801
  Transmission Date: 20061208
  Serious: Yes (Other)
  Sender: FDA-Public Use
  Company Number: US-JNJFOC-20060700814

PATIENT
  Sex: Female
  Weight: 67.13 kg

DRUGS (23)
  1. REMICADE [Suspect]
     Route: 042
  2. REMICADE [Suspect]
     Indication: RHEUMATOID ARTHRITIS
     Route: 042
  3. IMMUNE GLOBULIN INTRAVENOUS (HUMAN) [Concomitant]
  4. ZETIA [Concomitant]
     Indication: BLOOD CHOLESTEROL INCREASED
  5. TRICOR [Concomitant]
     Indication: BLOOD TRIGLYCERIDES INCREASED
  6. NEXIUM [Concomitant]
     Indication: GASTROOESOPHAGEAL REFLUX DISEASE
  7. OGEN [Concomitant]
     Indication: HORMONE REPLACEMENT THERAPY
  8. PREDNISONE [Concomitant]
     Indication: RHEUMATOID ARTHRITIS
  9. EFFEXOR XR [Concomitant]
     Indication: ANTIDEPRESSANT THERAPY
  10. RESTORIL [Concomitant]
     Indication: SLEEP DISORDER
  11. DIAZIDE [Concomitant]
     Indication: HYPERTENSION
     Dosage: 37.5/25 MG
  12. CARDIZEM CD [Concomitant]
     Indication: HYPERTENSION
  13. CALCIUM GLUCONATE [Concomitant]
  14. PROVIGIL [Concomitant]
  15. FOLIC ACID [Concomitant]
  16. IMMUNE GLOBULIN INTRAVENOUS (HUMAN) [Concomitant]
     Indication: HYPOGAMMAGLOBULINAEMIA
     Route: 042
  17. GLUCOPHAGE [Concomitant]
  18. ZELNORM [Concomitant]
     Indication: INFLAMMATORY BOWEL DISEASE
     Route: 058
  19. FEMRING [Concomitant]
     Indication: HORMONE THERAPY
  20. ADVAIR DISKUS 100/50 [Concomitant]
     Indication: ASTHMA
     Dosage: DOSE: 250/50
  21. PLAQUENIL [Concomitant]
  22. METHOTREXATE [Concomitant]
  23. LEUCOVORIN CALCIUM [Concomitant]

REACTIONS (1)
  - BREAST CANCER [None]
